FAERS Safety Report 4844321-7 (Version None)
Quarter: 2005Q4

REPORT INFORMATION
  Report Type: 
  Country: None (occurrence: None)
  Receive Date: 20051202
  Receipt Date: 20051004
  Transmission Date: 20060501
  Serious: Yes (Other)
  Sender: FDA-Public Use
  Company Number: US-MERCK-0510USA02442

PATIENT
  Age: 65 Year
  Sex: Female
  Weight: 76 kg

DRUGS (4)
  1. VIOXX [Suspect]
     Indication: BACK PAIN
     Route: 048
     Dates: start: 20010425
  2. GLUCOPHAGE [Concomitant]
     Route: 065
  3. FOSINOPRIL SODIUM [Concomitant]
     Route: 065
  4. ASPIRIN [Concomitant]
     Route: 065

REACTIONS (5)
  - CEREBROVASCULAR ACCIDENT [None]
  - HAEMORRHAGE [None]
  - MEMORY IMPAIRMENT [None]
  - RENAL HAEMORRHAGE [None]
  - TRANSIENT ISCHAEMIC ATTACK [None]
